FAERS Safety Report 6657425-3 (Version None)
Quarter: 2010Q1

REPORT INFORMATION
  Report Type: 
  Country: None (occurrence: None)
  Receive Date: 20100330
  Receipt Date: 20100318
  Transmission Date: 20100710
  Serious: Yes (Other)
  Sender: FDA-Public Use
  Company Number: BR-PFIZER INC-2010028791

PATIENT
  Sex: Female

DRUGS (6)
  1. ALDACTONE [Suspect]
     Indication: HYPERTENSION
     Dosage: 25 MG, 1X/DAY, 1 TABLET
     Route: 048
     Dates: start: 20100201, end: 20100301
  2. SOTALOL HCL [Concomitant]
     Indication: ARRHYTHMIA
     Dosage: UNK
  3. VYTORIN [Concomitant]
     Indication: BLOOD CHOLESTEROL INCREASED
     Dosage: 1 DF, 1X/DAY
     Route: 048
  4. VYTORIN [Concomitant]
     Indication: BLOOD TRIGLYCERIDES INCREASED
  5. DESOGESTREL AND ETHINYL ESTRADIOL [Concomitant]
     Dosage: UNK
  6. LEVOTHYROXINE SODIUM [Concomitant]
     Indication: HYPOTHYROIDISM
     Dosage: 100 MG, 1X/DAY

REACTIONS (4)
  - FACIAL PAIN [None]
  - HYPOAESTHESIA FACIAL [None]
  - MUSCLE SPASMS [None]
  - SPEECH DISORDER [None]
